FAERS Safety Report 9714890 (Version 2)
Quarter: 2013Q4

REPORT INFORMATION
  Report Type: Spontaneous
  Country: SE (occurrence: None)
  Receive Date: 20131125
  Receipt Date: 20131209
  Transmission Date: 20140711
  Serious: Yes (Other)
  Sender: FDA-Public Use
  Company Number: 2013329327

PATIENT
  Sex: Female

DRUGS (2)
  1. FRAGMIN [Suspect]
     Indication: PROPHYLAXIS
  2. FRAGMIN [Suspect]
     Indication: SURGERY

REACTIONS (3)
  - Atrial fibrillation [None]
  - Rheumatic disorder [None]
  - Disease recurrence [None]
